FAERS Safety Report 6283868-6 (Version None)
Quarter: 2009Q3

REPORT INFORMATION
  Report Type: 
  Country: None (occurrence: None)
  Receive Date: 20090723
  Receipt Date: 20090723
  Transmission Date: 20100115
  Serious: Yes (Other)
  Sender: FDA-Public Use
  Company Number: None

PATIENT
  Age: 88 Year
  Sex: Male
  Weight: 48.9885 kg

DRUGS (1)
  1. MEGESTROL ACETATE [Suspect]
     Indication: APPETITE DISORDER
     Dosage: 800 MG QAM PO
     Route: 048
     Dates: start: 20090101, end: 20090104

REACTIONS (2)
  - AGITATION [None]
  - CONFUSIONAL STATE [None]
